FAERS Safety Report 6733305-X (Version None)
Quarter: 2010Q2

REPORT INFORMATION
  Report Type: 
  Country: None (occurrence: None)
  Receive Date: 20100520
  Receipt Date: 20100510
  Transmission Date: 20101027
  Serious: Yes (Hospitalization, Other)
  Sender: FDA-Public Use
  Company Number: JP-PFIZER INC-2009201458

PATIENT
  Age: 65 Year
  Sex: Male
  Weight: 52.5 kg

DRUGS (2)
  1. SUNITINIB MALATE [Suspect]
     Indication: GASTROINTESTINAL STROMAL TUMOUR
     Dosage: 50 MG, 1X/DAY
     Route: 048
     Dates: start: 20081021
  2. RENIVACE [Concomitant]
     Route: 048
     Dates: start: 20081029, end: 20081118

REACTIONS (7)
  - ANAEMIA [None]
  - DECREASED APPETITE [None]
  - DERMATITIS BULLOUS [None]
  - EPISTAXIS [None]
  - HAEMOGLOBIN DECREASED [None]
  - NAUSEA [None]
  - PLATELET COUNT DECREASED [None]
